FAERS Safety Report 7967998-6 (Version None)
Quarter: 2011Q4

REPORT INFORMATION
  Report Type: 
  Country: None (occurrence: None)
  Receive Date: 20111209
  Receipt Date: 20111204
  Transmission Date: 20120403
  Serious: Yes (Other)
  Sender: FDA-Public Use
  Company Number: US-SANOFI-AVENTIS-2011SA080249

PATIENT
  Sex: Female

DRUGS (2)
  1. OPTICLICK [Suspect]
  2. LANTUS [Suspect]
     Dosage: PRODUCT START DATE: 5-6 YEARS DOSE:36 UNIT(S)
     Route: 058

REACTIONS (1)
  - RETINOPATHY [None]
